FAERS Safety Report 23775424 (Version 1)
Quarter: 2024Q2

REPORT INFORMATION
  Report Type: Spontaneous
  Country: CN (occurrence: CN)
  Receive Date: 20240423
  Receipt Date: 20240423
  Transmission Date: 20240716
  Serious: Yes (Hospitalization, Other)
  Sender: FDA-Public Use
  Company Number: CN-PFIZER INC-PV202400052837

PATIENT
  Age: 51 Year
  Sex: Female
  Weight: 51 kg

DRUGS (7)
  1. METHOTREXATE SODIUM [Suspect]
     Active Substance: METHOTREXATE SODIUM
     Indication: Benign hydatidiform mole
     Dosage: 160.000 MG, ONCE EVERY 14 DAYS
     Route: 042
     Dates: start: 20240322, end: 20240405
  2. METHOTREXATE SODIUM [Suspect]
     Active Substance: METHOTREXATE SODIUM
     Dosage: 320.000 MG, ONCE EVERY 14 DAYS
     Route: 041
     Dates: start: 20240322, end: 20240405
  3. ETOPOSIDE [Suspect]
     Active Substance: ETOPOSIDE
     Indication: Benign hydatidiform mole
     Dosage: 160.000 MG, 2X/WEEK
     Route: 041
     Dates: start: 20240322, end: 20240406
  4. DACTINOMYCIN [Suspect]
     Active Substance: DACTINOMYCIN
     Indication: Benign hydatidiform mole
     Dosage: 500.000 MG, 2X/WEEK
     Route: 041
     Dates: start: 20240322, end: 20240406
  5. CYCLOPHOSPHAMIDE [Suspect]
     Active Substance: CYCLOPHOSPHAMIDE
     Indication: Benign hydatidiform mole
     Dosage: 970.000 MG, ONCE EVERY 14 DAYS
     Route: 041
     Dates: start: 20240329, end: 20240413
  6. VINCRISTINE SULFATE [Suspect]
     Active Substance: VINCRISTINE SULFATE
     Indication: Benign hydatidiform mole
     Dosage: 2.000 MG, ONCE EVERY 14 DAYS
     Route: 042
     Dates: start: 20240329, end: 20240413
  7. LEUCOVORIN CALCIUM [Concomitant]
     Active Substance: LEUCOVORIN CALCIUM
     Indication: Benign hydatidiform mole
     Dosage: 15.000 MG, 4 TIMES EVERY 14 DAYS
     Route: 042
     Dates: start: 20240323, end: 20240407

REACTIONS (6)
  - White blood cell count decreased [Recovering/Resolving]
  - Haemoglobin decreased [Unknown]
  - Red blood cell count decreased [Unknown]
  - Platelet count increased [Unknown]
  - Neutrophil count decreased [Unknown]
  - Off label use [Unknown]

NARRATIVE: CASE EVENT DATE: 20240322
